FAERS Safety Report 11989180 (Version 2)
Quarter: 2016Q1

REPORT INFORMATION
  Report Type: Spontaneous
  Country: CO (occurrence: CO)
  Receive Date: 20160202
  Receipt Date: 20160217
  Transmission Date: 20160526
  Serious: Yes (Congenital Anomaly)
  Sender: FDA-Public Use
  Company Number: CO-EAGLE PHARMACEUTICALS, INC.-ELL201601-000009

PATIENT
  Sex: Female

DRUGS (1)
  1. DICLOFENAC SODIUM AND MISOPROSTOL [Suspect]
     Active Substance: DICLOFENAC SODIUM\MISOPROSTOL

REACTIONS (2)
  - Moebius II syndrome [Unknown]
  - Foetal exposure during pregnancy [Unknown]
